FAERS Safety Report 5125830-2 (Version None)
Quarter: 2006Q4

REPORT INFORMATION
  Report Type: 
  Country: None (occurrence: None)
  Receive Date: 20061012
  Receipt Date: 20060810
  Transmission Date: 20070319
  Serious: Yes (Hospitalization)
  Sender: FDA-Public Use
  Company Number: 2006SE04385

PATIENT
  Age: 74 Year
  Sex: Male
  Weight: 95 kg

DRUGS (4)
  1. CRESTOR [Suspect]
     Indication: HYPERLIPIDAEMIA
     Route: 048
     Dates: start: 20060630, end: 20060814
  2. AMARYL [Concomitant]
     Indication: DIABETES MELLITUS
     Route: 048
  3. CONCOR [Concomitant]
     Indication: CARDIAC DISORDER
     Route: 048
  4. FLOMAX [Concomitant]
     Indication: PROSTATE EXAMINATION ABNORMAL
     Route: 048

REACTIONS (4)
  - DRUG HYPERSENSITIVITY [None]
  - INTERSTITIAL LUNG DISEASE [None]
  - PLEURAL EFFUSION [None]
  - THERAPY NON-RESPONDER [None]
